FAERS Safety Report 5659587-3 (Version None)
Quarter: 2008Q1

REPORT INFORMATION
  Report Type: 
  Country: None (occurrence: None)
  Receive Date: 20080311
  Receipt Date: 20080307
  Transmission Date: 20080703
  Serious: Yes (Death)
  Sender: FDA-Public Use
  Company Number: PHEH2008US02041

PATIENT
  Age: 63 Year
  Sex: Female

DRUGS (1)
  1. RECLAST [Suspect]
     Indication: OSTEOPOROSIS
     Dosage: 5 MG, ONCE/SINGLE
     Dates: start: 20080101

REACTIONS (4)
  - ARTHRALGIA [None]
  - DEATH [None]
  - DIZZINESS [None]
  - MYALGIA [None]
